FAERS Safety Report 6912702-3 (Version None)
Quarter: 2010Q3

REPORT INFORMATION
  Report Type: 
  Country: None (occurrence: None)
  Receive Date: 20100806
  Receipt Date: 20080926
  Transmission Date: 20110219
  Serious: No
  Sender: FDA-Public Use
  Company Number: US-PFIZER INC-2005030758

PATIENT
  Sex: Female
  Weight: 57.15 kg

DRUGS (7)
  1. DETROL LA [Suspect]
     Indication: POLLAKIURIA
     Dosage: DAILY
     Route: 065
     Dates: start: 20080919
  2. VESICARE [Suspect]
  3. ALL OTHER THERAPEUTIC PRODUCTS [Suspect]
  4. LEXAPRO [Concomitant]
     Route: 065
  5. PROSOM [Concomitant]
     Route: 065
  6. ACETYLSALICYLIC ACID SRT [Concomitant]
     Route: 065
  7. LISINOPRIL [Concomitant]
     Route: 065

REACTIONS (4)
  - DRY MOUTH [None]
  - MIDDLE INSOMNIA [None]
  - NOCTURIA [None]
  - POLLAKIURIA [None]
